FAERS Safety Report 10237023 (Version 1)
Quarter: 2014Q1

REPORT INFORMATION
  Report Type: Spontaneous
  Country: US (occurrence: None)
  Receive Date: 20140306
  Receipt Date: 20140306
  Transmission Date: 20141002
  Serious: Yes (Hospitalization, Other)
  Sender: FDA-Public Use
  Company Number: 163-21880-13081620

PATIENT
  Age: 68 Year
  Sex: Female

DRUGS (16)
  1. REVLIMID (LENALIDOMIDE) (25 MILLIGRAM, CAPSULES) [Suspect]
     Indication: PLASMA CELL MYELOMA
     Dosage: 25 MG, 21 IN 28 D, PO
     Route: 048
     Dates: start: 20130730, end: 20130809
  2. DECADRON (DEXAMETHASONE) (4 MILLIGRAM, UNKNOWN) [Concomitant]
  3. FLEXERIL (CYCLOBENZAPRINE HYDROCHLORIDE) (UNKNOWN) [Concomitant]
  4. OXYCODONE HCL (OXYCODONE HYDROCHLORIDE) (UNKNOWN) [Concomitant]
  5. DILAUDID (HYDROMORPHONE HYDROCHLORIDE) (UNKNOWN) [Concomitant]
  6. FENTANYL (FENTANYL) (POULTICE OR PATCH) [Concomitant]
  7. MIRALAX (MACROGOL) (POWDER) [Concomitant]
  8. LACTULOSE (LACTULOSE) (SYRUP) [Concomitant]
  9. MYCELEX (CLOTRIMAZOLE) (TROCHE) [Concomitant]
  10. ZOFRAN (ONDANSETRON HYDROCHLORIDE) (UNKNOWN) [Concomitant]
  11. PACKED RED BLOOD CELLS (BLOOD AND RELATED PRODUCTS) (UNKNOWN) [Concomitant]
  12. COLACE (DOCUSATE SODIUM) (UNKNOWN) [Concomitant]
  13. SENNA (SENNA) (UNKNOWN) [Concomitant]
  14. ASPIRIN (ACETYLSALICYLIC ACID) [Concomitant]
  15. CLOTRIMAZOLE (CLOTRIMAZOLE) (TROCHE) [Concomitant]
  16. AVELOX (MOXIFLOXACIN HYDROCHLORIDE) (UNKNOWN) [Concomitant]

REACTIONS (3)
  - Muscle spasms [None]
  - Back pain [None]
  - Pancytopenia [None]
